FAERS Safety Report 8443616-8 (Version None)
Quarter: 2012Q2

REPORT INFORMATION
  Report Type: 
  Country: None (occurrence: None)
  Receive Date: 20120618
  Receipt Date: 20120613
  Transmission Date: 20120825
  Serious: Yes (Other)
  Sender: FDA-Public Use
  Company Number: US-PFIZER INC-2011081660

PATIENT
  Sex: Female
  Weight: 73 kg

DRUGS (3)
  1. CELEXA [Concomitant]
     Dosage: UNK
  2. CHANTIX [Suspect]
     Dosage: 1 MG, 2X/DAY
     Route: 048
     Dates: start: 20110301, end: 20110325
  3. CHANTIX [Suspect]
     Indication: SMOKING CESSATION THERAPY
     Dosage: 0.5 MG, 1X/DAY
     Route: 048
     Dates: start: 20110304, end: 20110301

REACTIONS (4)
  - MANIA [None]
  - ANGER [None]
  - FULL BLOOD COUNT ABNORMAL [None]
  - HOMICIDAL IDEATION [None]
